FAERS Safety Report 9031117 (Version 1)
Quarter: 2013Q1

REPORT INFORMATION
  Report Type: Spontaneous
  Country: US (occurrence: US)
  Receive Date: 20130123
  Receipt Date: 20130123
  Transmission Date: 20140127
  Serious: No
  Sender: FDA-Public Use
  Company Number: US-ASTRAZENECA-2013SE03321

PATIENT
  Age: 65 Year
  Sex: Male
  Weight: 76.2 kg

DRUGS (9)
  1. TOPROL XL [Suspect]
     Indication: HYPERTENSION
     Route: 048
     Dates: start: 2003, end: 2011
  2. TOPROL XL [Suspect]
     Indication: HYPERTENSION
     Route: 048
     Dates: start: 2011, end: 2011
  3. TOPROL XL [Suspect]
     Indication: HYPERTENSION
     Route: 048
     Dates: start: 2011, end: 20130109
  4. TOPROL XL [Suspect]
     Indication: HYPERTENSION
     Route: 048
     Dates: start: 20130110
  5. PROTOZOL [Suspect]
     Route: 065
  6. UNSPECIFIED INGREDIENT [Suspect]
     Route: 065
     Dates: start: 20130108
  7. PROVENTIL INHALER [Concomitant]
  8. ADVAIR INHALER [Concomitant]
  9. BENICAR [Concomitant]

REACTIONS (4)
  - Blood pressure increased [Unknown]
  - Rash [Recovered/Resolved]
  - Urticaria [Not Recovered/Not Resolved]
  - Drug ineffective [Unknown]
